FAERS Safety Report 8405320-1 (Version None)
Quarter: 2012Q2

REPORT INFORMATION
  Report Type: 
  Country: None (occurrence: None)
  Receive Date: 20120604
  Receipt Date: 20120525
  Transmission Date: 20120825
  Serious: Yes (Hospitalization, Other)
  Sender: FDA-Public Use
  Company Number: US-AMGEN-USASP2012033243

PATIENT
  Age: 79 Year
  Sex: Male

DRUGS (14)
  1. REVLIMID [Suspect]
     Dosage: 10 MG, QOD
     Route: 048
     Dates: start: 20120104
  2. BISOPROLOL FUMARATE [Concomitant]
  3. PLAVIX [Concomitant]
  4. ARANESP [Suspect]
     Indication: PRODUCT USED FOR UNKNOWN INDICATION
     Dosage: UNK
  5. AMITRIPTYLINE HCL [Concomitant]
  6. REVLIMID [Suspect]
     Indication: 5Q MINUS SYNDROME
     Dosage: 10 MG, QD
     Route: 048
     Dates: start: 20111028, end: 20111214
  7. COZAAR [Concomitant]
  8. FOLBEE [Concomitant]
  9. LENTISULIN CPI [Concomitant]
  10. NOVOLIN 70/30 [Concomitant]
  11. GLUCOSAMINE [Concomitant]
  12. LIPITOR [Concomitant]
  13. VITAMIN D [Concomitant]
  14. ASPIRIN [Concomitant]

REACTIONS (3)
  - DEEP VEIN THROMBOSIS [None]
  - UROSEPSIS [None]
  - FULL BLOOD COUNT DECREASED [None]
